FAERS Safety Report 5768106-2 (Version None)
Quarter: 2008Q2

REPORT INFORMATION
  Report Type: 
  Country: None (occurrence: None)
  Receive Date: 20080606
  Receipt Date: 20080519
  Transmission Date: 20081010
  Serious: Yes (Hospitalization)
  Sender: FDA-Public Use
  Company Number: 6042991

PATIENT
  Age: 98 Year
  Sex: Male

DRUGS (18)
  1. BISOPROLOL FUMARATE [Suspect]
     Indication: CARDIAC FAILURE
     Dosage: 1.25 MG (1.25 MG, 1 D) ORAL
     Route: 048
     Dates: end: 20080407
  2. RAMIPRIL [Suspect]
     Indication: CARDIAC FAILURE
     Dosage: 1.25 MG (1.25 MG, 1 D) ORAL
     Route: 048
     Dates: end: 20080407
  3. LASIX [Concomitant]
  4. POTASSIUM CHLORIDE [Concomitant]
  5. AMIODARONE HCL [Concomitant]
  6. KARDEGIC (ACETYLSALICYLATE LYSINE) [Concomitant]
  7. ATACAND [Concomitant]
  8. VENTOLIN [Concomitant]
  9. BECONASE [Concomitant]
  10. SPIRIVA [Concomitant]
  11. LEVOTHYROXINE SODIUM [Concomitant]
  12. DI ANTALVIC (PARACETAMOL, DEXTROPROPOXYPHENE) [Concomitant]
  13. FORLAX (MACROGOL) [Concomitant]
  14. HYDROCORTISONE [Concomitant]
  15. NEXIUM [Concomitant]
  16. CACIT (CALCIUM CARBONATE) [Concomitant]
  17. FERROUS SULFATE TAB [Concomitant]
  18. IMOVANE (ZOPICLONE) [Concomitant]

REACTIONS (5)
  - BRONCHITIS [None]
  - HYPOTENSION [None]
  - LUNG INFECTION [None]
  - RENAL FAILURE ACUTE [None]
  - SUPERINFECTION [None]
